FAERS Safety Report 8055830-4 (Version None)
Quarter: 2012Q1

REPORT INFORMATION
  Report Type: 
  Country: None (occurrence: None)
  Receive Date: 20120119
  Receipt Date: 20120119
  Transmission Date: 20120608
  Serious: Yes (Other)
  Sender: FDA-Public Use
  Company Number: None

PATIENT
  Age: 65 Year
  Sex: Female

DRUGS (2)
  1. LUCENTIS [Suspect]
     Indication: MACULAR OEDEMA
     Dosage: 1 DOSE 0.5 MG
     Route: 031
     Dates: start: 20101221, end: 20111202
  2. LUCENTIS [Suspect]
     Indication: RETINAL VEIN OCCLUSION
     Dosage: 1 DOSE 0.5 MG
     Route: 031
     Dates: start: 20101221, end: 20111202

REACTIONS (1)
  - ENDOPHTHALMITIS [None]
